FAERS Safety Report 20605543 (Version 2)
Quarter: 2022Q4

REPORT INFORMATION
  Report Type: Spontaneous
  Country: US (occurrence: US)
  Receive Date: 20220317
  Receipt Date: 20221031
  Transmission Date: 20230113
  Serious: No
  Sender: FDA-Public Use
  Company Number: US-GLAXOSMITHKLINE-US2022AMR044627

PATIENT
  Sex: Female

DRUGS (2)
  1. ZEJULA [Suspect]
     Active Substance: NIRAPARIB
     Indication: Ovarian cancer
     Dosage: 200 MG, BID
     Dates: start: 20211126
  2. ZEJULA [Suspect]
     Active Substance: NIRAPARIB
     Dosage: 100 MG

REACTIONS (4)
  - Platelet count decreased [Not Recovered/Not Resolved]
  - Withdrawal hypertension [Unknown]
  - Blood pressure diastolic increased [Recovered/Resolved]
  - Blood pressure increased [Unknown]
